FAERS Safety Report 21849554 (Version 1)
Quarter: 2023Q1

REPORT INFORMATION
  Report Type: Report from Study
  Country: US (occurrence: US)
  Receive Date: 20230111
  Receipt Date: 20230111
  Transmission Date: 20230418
  Serious: Yes (Hospitalization, Other)
  Sender: FDA-Public Use
  Company Number: US-Indivior Limited-INDV-137388-2023

PATIENT

DRUGS (2)
  1. SUBLOCADE [Suspect]
     Active Substance: BUPRENORPHINE
     Indication: Drug dependence
     Dosage: 300 MILLIGRAM, QMO
     Route: 065
     Dates: start: 2021
  2. SUBLOCADE [Suspect]
     Active Substance: BUPRENORPHINE
     Dosage: 300 MILLIGRAM, QMO
     Route: 042
     Dates: start: 20221229

REACTIONS (6)
  - Injection site thrombosis [Not Recovered/Not Resolved]
  - Syncope [Recovered/Resolved]
  - Injection site cellulitis [Unknown]
  - Injection site hypoaesthesia [Unknown]
  - Injection site paraesthesia [Recovered/Resolved]
  - Drug effect less than expected [Not Recovered/Not Resolved]

NARRATIVE: CASE EVENT DATE: 20221201
